FAERS Safety Report 15978208 (Version 13)
Quarter: 2024Q3

REPORT INFORMATION
  Report Type: Report from Study
  Country: JP (occurrence: JP)
  Receive Date: 20190218
  Receipt Date: 20240709
  Transmission Date: 20241016
  Serious: Yes (Hospitalization, Other)
  Sender: ABBVIE
  Company Number: JP-ABBVIE-17K-087-2181146-00

PATIENT
  Age: 40 Year
  Sex: Female
  Weight: 48 kg

DRUGS (8)
  1. CARBIDOPA\LEVODOPA [Suspect]
     Active Substance: CARBIDOPA\LEVODOPA
     Indication: Parkinson^s disease
     Dosage: MD: 4.0 ML?CD: 2.1 ML/HR. X 16 HR.?ED: 1.0 ML/UNIT X 2 TIMES
     Route: 050
     Dates: start: 20161121, end: 20161128
  2. CARBIDOPA\LEVODOPA [Suspect]
     Active Substance: CARBIDOPA\LEVODOPA
     Dosage: MD: 4.0 ML?CD: 2.1 ML/HR. X16 HR.?ED: 1.0 ML/UNIT X 2 TIMES
     Route: 050
     Dates: start: 20161121, end: 20170116
  3. CARBIDOPA\LEVODOPA [Suspect]
     Active Substance: CARBIDOPA\LEVODOPA
     Dosage: MD: 4.0 ML?CD: 2.1 ML/HR. X 16 HR.?ED: 1.0 ML/UNIT X 2
     Route: 050
     Dates: start: 20170120
  4. CARBIDOPA\LEVODOPA [Suspect]
     Active Substance: CARBIDOPA\LEVODOPA
     Route: 050
  5. CARBIDOPA\LEVODOPA [Concomitant]
     Active Substance: CARBIDOPA\LEVODOPA
     Indication: Parkinson^s disease
     Route: 048
     Dates: start: 20170117, end: 20170120
  6. SELEGILINE HYDROCHLORIDE [Concomitant]
     Active Substance: SELEGILINE HYDROCHLORIDE
     Indication: Parkinson^s disease
     Route: 065
  7. ROTIGOTINE [Concomitant]
     Active Substance: ROTIGOTINE
     Indication: Parkinson^s disease
     Route: 048
     Dates: start: 20161209
  8. ROTIGOTINE [Concomitant]
     Active Substance: ROTIGOTINE
     Indication: Parkinson^s disease
     Route: 062

REACTIONS (25)
  - Medical device site ulcer [Recovered/Resolved]
  - Device kink [Recovered/Resolved]
  - Aspiration [Unknown]
  - Abdominal discomfort [Unknown]
  - Bezoar [Recovered/Resolved]
  - Device occlusion [Recovered/Resolved]
  - Dyspepsia [Unknown]
  - Stoma site pain [Recovered/Resolved]
  - Vomiting [Unknown]
  - Decreased appetite [Unknown]
  - Nausea [Recovered/Resolved]
  - Abdominal discomfort [Unknown]
  - Rash [Unknown]
  - Pruritus [Unknown]
  - Device dislocation [Recovered/Resolved]
  - Abdominal pain [Unknown]
  - Device dislocation [Recovered/Resolved]
  - Therapeutic product effect decreased [Unknown]
  - On and off phenomenon [Recovered/Resolved]
  - Dyskinesia [Unknown]
  - Constipation [Unknown]
  - Insomnia [Unknown]
  - Medical device site pain [Unknown]
  - Mobility decreased [Unknown]
  - Product use issue [Unknown]

NARRATIVE: CASE EVENT DATE: 20170115
